FAERS Safety Report 13301695 (Version 2)
Quarter: 2017Q1

REPORT INFORMATION
  Report Type: Spontaneous
  Country: US (occurrence: US)
  Receive Date: 20170307
  Receipt Date: 20170317
  Transmission Date: 20170428
  Serious: Yes (Hospitalization, Other)
  Sender: FDA-Public Use
  Company Number: US-SA-2017SA033539

PATIENT
  Age: 35 Year
  Sex: Female

DRUGS (6)
  1. CEPHALEXIN. [Concomitant]
     Active Substance: CEPHALEXIN
     Route: 048
  2. CEFAZOLIN [Concomitant]
     Active Substance: CEFAZOLIN
     Route: 042
  3. ASPIRIN. [Suspect]
     Active Substance: ASPIRIN
     Route: 065
  4. TAZOBACTAM/PIPERACILLIN [Concomitant]
  5. VANCOMYCIN [Concomitant]
     Active Substance: VANCOMYCIN
  6. CLOPIDOGREL BISULFATE. [Suspect]
     Active Substance: CLOPIDOGREL BISULFATE
     Route: 065

REACTIONS (5)
  - Bacteraemia [Recovering/Resolving]
  - Swelling [Recovering/Resolving]
  - Implant site haematoma [Recovered/Resolved with Sequelae]
  - Implant site infection [Recovering/Resolving]
  - Pain [Recovering/Resolving]
